FAERS Safety Report 21981702 (Version 2)
Quarter: 2023Q1

REPORT INFORMATION
  Report Type: Spontaneous
  Country: US (occurrence: US)
  Receive Date: 20230212
  Receipt Date: 20230220
  Transmission Date: 20230418
  Serious: No
  Sender: FDA-Public Use
  Company Number: US-002147023-NVSC2023US031977

PATIENT
  Sex: Female

DRUGS (1)
  1. HYCAMTIN [Suspect]
     Active Substance: TOPOTECAN HYDROCHLORIDE
     Indication: Neoplasm malignant
     Dosage: 3 MG, QD (ON DAYS 1, 2, 3, 4 AND 5 OF EACH 11 DAY CYCLE)
     Route: 048
     Dates: start: 202301

REACTIONS (2)
  - Incorrect dose administered [Unknown]
  - Vomiting [Unknown]
